FAERS Safety Report 17033519 (Version 2)
Quarter: 2019Q4

REPORT INFORMATION
  Report Type: Spontaneous
  Country: DE (occurrence: DE)
  Receive Date: 20191114
  Receipt Date: 20191213
  Transmission Date: 20200122
  Serious: Yes (Other)
  Sender: FDA-Public Use
  Company Number: DE-JNJFOC-20191038808

PATIENT
  Sex: Female

DRUGS (2)
  1. DUROGESIC SMAT [Suspect]
     Active Substance: FENTANYL
     Indication: PRODUCT USED FOR UNKNOWN INDICATION
     Route: 062
  2. DUROGESIC SMAT [Suspect]
     Active Substance: FENTANYL
     Route: 062

REACTIONS (3)
  - Asthma [Unknown]
  - Anaphylactic shock [Unknown]
  - Drug intolerance [Unknown]
